FAERS Safety Report 10008994 (Version 1)
Quarter: 2014Q1

REPORT INFORMATION
  Report Type: Spontaneous
  Country: US (occurrence: US)
  Receive Date: 20140313
  Receipt Date: 20140313
  Transmission Date: 20141002
  Serious: No
  Sender: FDA-Public Use
  Company Number: US-INCYTE CORPORATION-2012IN000993

PATIENT
  Sex: 0

DRUGS (3)
  1. JAKAFI [Suspect]
     Indication: MYELOFIBROSIS
     Dosage: 15 MG, BID
     Route: 048
  2. JAKAFI [Suspect]
     Dosage: 10 MG, BID
     Route: 048
  3. HYDREA [Concomitant]

REACTIONS (2)
  - Renal failure [Unknown]
  - White blood cell count increased [Unknown]
